FAERS Safety Report 18932938 (Version 1)
Quarter: 2021Q1

REPORT INFORMATION
  Report Type: Spontaneous
  Country: ES (occurrence: ES)
  Receive Date: 20210224
  Receipt Date: 20210224
  Transmission Date: 20210420
  Serious: Yes (Hospitalization)
  Sender: FDA-Public Use
  Company Number: ES-TEVA-2021-ES-1882321

PATIENT
  Age: 29 Year
  Sex: Female

DRUGS (44)
  1. CYTARABINE. [Suspect]
     Active Substance: CYTARABINE
     Indication: T-CELL TYPE ACUTE LEUKAEMIA
     Route: 037
     Dates: start: 20160402
  2. CYTARABINE. [Suspect]
     Active Substance: CYTARABINE
     Route: 037
     Dates: start: 20160705
  3. HYDROCORTISONE. [Suspect]
     Active Substance: HYDROCORTISONE
     Route: 065
     Dates: start: 20160705
  4. ASPARAGINASE [Suspect]
     Active Substance: ASPARAGINASE
     Indication: T-CELL TYPE ACUTE LEUKAEMIA
     Route: 042
     Dates: start: 20151124
  5. ASPARAGINASE [Suspect]
     Active Substance: ASPARAGINASE
     Route: 042
     Dates: start: 20160105
  6. DEXAMETHASONE. [Concomitant]
     Active Substance: DEXAMETHASONE
     Route: 065
     Dates: start: 20160705
  7. METHOTREXATE. [Suspect]
     Active Substance: METHOTREXATE
     Indication: T-CELL TYPE ACUTE LEUKAEMIA
     Route: 037
     Dates: start: 20160402
  8. METHOTREXATE. [Suspect]
     Active Substance: METHOTREXATE
     Route: 042
     Dates: start: 20160402
  9. METHOTREXATE. [Suspect]
     Active Substance: METHOTREXATE
     Route: 030
     Dates: start: 20170427, end: 20171106
  10. CYTARABINE. [Suspect]
     Active Substance: CYTARABINE
     Route: 037
     Dates: start: 20160812
  11. CYTARABINE. [Suspect]
     Active Substance: CYTARABINE
     Route: 042
     Dates: start: 20160104
  12. VINCRISTINE [Suspect]
     Active Substance: VINCRISTINE
     Route: 042
     Dates: start: 20170705
  13. METHOTREXATE. [Suspect]
     Active Substance: METHOTREXATE
     Route: 030
     Dates: start: 20160812
  14. CYTARABINE. [Suspect]
     Active Substance: CYTARABINE
     Route: 037
     Dates: start: 20151124
  15. HYDROCORTISONE. [Suspect]
     Active Substance: HYDROCORTISONE
     Route: 065
     Dates: start: 20151124
  16. IDARUBICIN [Concomitant]
     Active Substance: IDARUBICIN
     Indication: T-CELL TYPE ACUTE LEUKAEMIA
     Route: 042
     Dates: start: 20160104
  17. MERCAPTOPURINE. [Concomitant]
     Active Substance: MERCAPTOPURINE
     Route: 048
     Dates: start: 20170427, end: 20171106
  18. FLUDARABINE [Suspect]
     Active Substance: FLUDARABINE PHOSPHATE
     Indication: T-CELL TYPE ACUTE LEUKAEMIA
     Route: 042
     Dates: start: 20160104
  19. NELARABINE [Suspect]
     Active Substance: NELARABINE
     Dosage: PROPHYLACTIC DOSE
     Route: 037
  20. METHOTREXATE. [Suspect]
     Active Substance: METHOTREXATE
     Route: 037
     Dates: start: 20160104
  21. CYTARABINE. [Suspect]
     Active Substance: CYTARABINE
     Route: 042
     Dates: start: 20160402
  22. VINCRISTINE [Suspect]
     Active Substance: VINCRISTINE
     Route: 042
     Dates: start: 20170812
  23. PREDNISONE. [Suspect]
     Active Substance: PREDNISONE
     Indication: T-CELL TYPE ACUTE LEUKAEMIA
     Route: 065
     Dates: start: 20151124
  24. DAUNORUBICIN [Suspect]
     Active Substance: DAUNORUBICIN
     Indication: T-CELL TYPE ACUTE LEUKAEMIA
     Route: 042
     Dates: start: 20151124
  25. CYTARABINE. [Suspect]
     Active Substance: CYTARABINE
     Route: 042
     Dates: start: 20160705
  26. HYDROCORTISONE. [Suspect]
     Active Substance: HYDROCORTISONE
     Route: 065
     Dates: start: 20160104
  27. MERCAPTOPURINE. [Concomitant]
     Active Substance: MERCAPTOPURINE
     Indication: T-CELL TYPE ACUTE LEUKAEMIA
     Route: 048
     Dates: start: 20160812
  28. METHOTREXATE. [Suspect]
     Active Substance: METHOTREXATE
     Route: 037
     Dates: start: 20160705
  29. METHOTREXATE. [Suspect]
     Active Substance: METHOTREXATE
     Route: 037
     Dates: start: 20171122
  30. CYTARABINE. [Suspect]
     Active Substance: CYTARABINE
     Route: 037
     Dates: start: 20171122
  31. VINCRISTINE [Suspect]
     Active Substance: VINCRISTINE
     Indication: T-CELL TYPE ACUTE LEUKAEMIA
     Route: 042
     Dates: start: 20151124
  32. HYDROCORTISONE. [Suspect]
     Active Substance: HYDROCORTISONE
     Route: 065
     Dates: start: 20160812
  33. ASPARAGINASE [Suspect]
     Active Substance: ASPARAGINASE
     Route: 042
     Dates: start: 20160402
  34. DEXAMETHASONE. [Concomitant]
     Active Substance: DEXAMETHASONE
     Route: 065
     Dates: start: 20160812
  35. NELARABINE [Suspect]
     Active Substance: NELARABINE
     Indication: T-CELL TYPE ACUTE LEUKAEMIA
     Dosage: (1500 MG/M2 IV ON DAYS +1, +3, AND +5 EVERY 21 DAYS)
     Route: 042
  36. METHOTREXATE. [Suspect]
     Active Substance: METHOTREXATE
     Route: 037
     Dates: start: 20151124
  37. METHOTREXATE. [Suspect]
     Active Substance: METHOTREXATE
     Route: 042
     Dates: start: 20160805
  38. VINCRISTINE [Suspect]
     Active Substance: VINCRISTINE
     Route: 048
     Dates: start: 20160402
  39. DEXAMETHASONE. [Concomitant]
     Active Substance: DEXAMETHASONE
     Indication: T-CELL TYPE ACUTE LEUKAEMIA
     Route: 065
     Dates: start: 20160402
  40. METHOTREXATE. [Suspect]
     Active Substance: METHOTREXATE
     Route: 037
     Dates: start: 20160812
  41. CYTARABINE. [Suspect]
     Active Substance: CYTARABINE
     Route: 037
     Dates: start: 20160104
  42. CYTARABINE. [Suspect]
     Active Substance: CYTARABINE
     Dosage: 2G/M2; DAYS 1 TO 5
     Route: 037
     Dates: start: 20171219
  43. HYDROCORTISONE. [Suspect]
     Active Substance: HYDROCORTISONE
     Indication: T-CELL TYPE ACUTE LEUKAEMIA
     Route: 065
     Dates: start: 20160402
  44. CLOFARABINE. [Concomitant]
     Active Substance: CLOFARABINE
     Indication: T-CELL TYPE ACUTE LEUKAEMIA
     Dosage: DAY 1?5
     Route: 042
     Dates: start: 20171219

REACTIONS (7)
  - Drug ineffective [Unknown]
  - Monoparesis [Unknown]
  - Autonomic nervous system imbalance [Not Recovered/Not Resolved]
  - Polyneuropathy [Unknown]
  - Neurotoxicity [Unknown]
  - Paraplegia [Not Recovered/Not Resolved]
  - Myelopathy [Unknown]
